FAERS Safety Report 8325648-3 (Version None)
Quarter: 2012Q2

REPORT INFORMATION
  Report Type: 
  Country: None (occurrence: None)
  Receive Date: 20120501
  Receipt Date: 20120417
  Transmission Date: 20120825
  Serious: No
  Sender: FDA-Public Use
  Company Number: US-JNJFOC-20120408653

PATIENT
  Age: 50 Year
  Sex: Female

DRUGS (2)
  1. INVEGA SUSTENNA [Suspect]
     Dosage: GIVEN AT DAY 1
     Route: 030
     Dates: start: 20120301
  2. INVEGA SUSTENNA [Suspect]
     Indication: PRODUCT USED FOR UNKNOWN INDICATION
     Dosage: GIVEN AT DAY 8
     Route: 030
     Dates: start: 20120301

REACTIONS (3)
  - INJECTION SITE CELLULITIS [None]
  - INJECTION SITE REACTION [None]
  - CELLULITIS [None]
